FAERS Safety Report 19053759 (Version 1)
Quarter: 2021Q1

REPORT INFORMATION
  Report Type: Spontaneous
  Country: US (occurrence: US)
  Receive Date: 20210325
  Receipt Date: 20210325
  Transmission Date: 20210420
  Serious: Yes (Other)
  Sender: FDA-Public Use
  Company Number: US-SUN PHARMACEUTICAL INDUSTRIES LTD-2021R1-287116

PATIENT
  Age: 48 Year
  Sex: Male

DRUGS (1)
  1. BUPROPION. [Suspect]
     Active Substance: BUPROPION
     Indication: SUICIDE ATTEMPT
     Dosage: 90 DOSAGE FORM(2700 MG TOTAL)
     Route: 048

REACTIONS (5)
  - Brain stem syndrome [Recovering/Resolving]
  - Overdose [Unknown]
  - Status epilepticus [Recovering/Resolving]
  - Electrocardiogram QT prolonged [Unknown]
  - Chest discomfort [Unknown]
